FAERS Safety Report 11175683 (Version 1)
Quarter: 2015Q2

REPORT INFORMATION
  Report Type: Spontaneous
  Country: US (occurrence: US)
  Receive Date: 20150609
  Receipt Date: 20150609
  Transmission Date: 20150821
  Serious: No
  Sender: FDA-Public Use
  Company Number: US-GLAXOSMITHKLINE-US2015079044

PATIENT
  Sex: Female

DRUGS (4)
  1. LOSARTAN [Concomitant]
     Active Substance: LOSARTAN
  2. LEVOTHYROXINE [Concomitant]
     Active Substance: LEVOTHYROXINE
  3. VOTRIENT [Suspect]
     Active Substance: PAZOPANIB HYDROCHLORIDE
     Indication: RENAL CANCER RECURRENT
     Dosage: 800 MG, 1D
     Route: 048
     Dates: start: 201403
  4. EYE DROPS [Concomitant]
     Active Substance: TETRAHYDROZOLINE HYDROCHLORIDE

REACTIONS (12)
  - Glossodynia [Recovered/Resolved]
  - Malaise [Recovered/Resolved]
  - Thyroid hormones increased [Recovered/Resolved]
  - Dry eye [Not Recovered/Not Resolved]
  - Abdominal pain upper [Recovered/Resolved]
  - Diarrhoea [Recovered/Resolved]
  - Headache [Recovered/Resolved]
  - Hepatic enzyme increased [Not Recovered/Not Resolved]
  - Fatigue [Recovered/Resolved]
  - Blood pressure increased [Recovered/Resolved]
  - Dysgeusia [Not Recovered/Not Resolved]
  - Dry mouth [Not Recovered/Not Resolved]
